FAERS Safety Report 7920720-1 (Version None)
Quarter: 2011Q4

REPORT INFORMATION
  Report Type: 
  Country: None (occurrence: None)
  Receive Date: 20111117
  Receipt Date: 20111104
  Transmission Date: 20120403
  Serious: Yes (Hospitalization)
  Sender: FDA-Public Use
  Company Number: US-BAYER-2011-007045

PATIENT
  Age: 19 Year
  Sex: Female
  Weight: 133.79 kg

DRUGS (10)
  1. CIPROFLOXACIN [Concomitant]
     Indication: URINARY TRACT INFECTION
  2. CLARITIN [Concomitant]
  3. ACETAMINOPHEN [Concomitant]
     Indication: HEADACHE
     Dosage: 625 MG, UNK
     Dates: start: 20020713, end: 20020714
  4. RESPIRATORY SYSTEM [Concomitant]
     Indication: MULTIPLE ALLERGIES
     Dosage: 5 MG, QD
     Route: 048
     Dates: start: 20020713
  5. AUGMENTIN [Concomitant]
     Indication: SINUSITIS
     Dosage: 500 MG, BID
     Route: 048
     Dates: start: 20020713
  6. LEVAQUIN [Concomitant]
     Indication: URINARY TRACT INFECTION
  7. YASMIN [Suspect]
     Indication: ORAL CONTRACEPTION
     Dosage: UNK
     Dates: start: 20020401, end: 20020715
  8. ORAL CONTRACEPTIVE NOS [Concomitant]
  9. RESPIRATORY SYSTEM [Concomitant]
     Indication: SINUS DISORDER
  10. ANTIBIOTICS [Concomitant]

REACTIONS (5)
  - PULMONARY EMBOLISM [None]
  - PAIN [None]
  - EMOTIONAL DISTRESS [None]
  - INJURY [None]
  - ANXIETY [None]
